FAERS Safety Report 11222380 (Version 1)
Quarter: 2015Q2

REPORT INFORMATION
  Report Type: Spontaneous
  Country: CN (occurrence: CN)
  Receive Date: 20150626
  Receipt Date: 20150626
  Transmission Date: 20150821
  Serious: Yes (Death)
  Sender: FDA-Public Use
  Company Number: CN-COREPHARMA LLC-2015COR00124

PATIENT
  Age: 47 Year
  Sex: Female
  Weight: 37 kg

DRUGS (16)
  1. OXYGEN. [Concomitant]
     Active Substance: OXYGEN
  2. FENTANYL. [Suspect]
     Active Substance: FENTANYL
     Indication: ANAESTHESIA
     Dosage: 150 ?G, UNK
     Route: 042
  3. SEVOFLURANE. [Concomitant]
     Active Substance: SEVOFLURANE
  4. CIS-ATRACURIUM [Suspect]
     Active Substance: CISATRACURIUM
     Dosage: 8 MG, UNK
  5. FENTANYL. [Suspect]
     Active Substance: FENTANYL
     Dosage: 100 ?G, UNK
  6. PROPOFOL. [Concomitant]
     Active Substance: PROPOFOL
     Dosage: 200 MG, ONCE
  7. PANTOPRAZOLE [Concomitant]
     Active Substance: PANTOPRAZOLE SODIUM
     Dosage: 40 MG, ONCE
  8. ATROPINE [Concomitant]
     Active Substance: ATROPINE
     Dosage: 0.5 MG, UNK
  9. CEFOTIAM [Concomitant]
     Active Substance: CEFOTIAM
     Dosage: 2 G, ONCE
  10. NITROUS OXIDE. [Concomitant]
     Active Substance: NITROUS OXIDE
  11. SUCCINYLCHOLINE [Concomitant]
     Active Substance: SUCCINYLCHOLINE
     Dosage: 100 MG, UNK
  12. CLINDAMYCIN [Suspect]
     Active Substance: CLINDAMYCIN\CLINDAMYCIN PHOSPHATE
     Dosage: 1.2 G, UNK
     Route: 042
  13. MIDAZOLAM [Concomitant]
     Active Substance: MIDAZOLAM\MIDAZOLAM HYDROCHLORIDE
     Dosage: 2 MG, UNK
  14. FENTANYL. [Suspect]
     Active Substance: FENTANYL
     Dosage: 300 ?G, UNK
  15. NEOSTIGMINE [Concomitant]
     Active Substance: NEOSTIGMINE
     Dosage: 1 MG, ONCE
  16. TRAMADOL [Concomitant]
     Active Substance: TRAMADOL

REACTIONS (5)
  - Overdose [Fatal]
  - Cardiac arrest [Fatal]
  - Respiratory arrest [Fatal]
  - Respiratory depression [Fatal]
  - Neuromuscular blockade [Fatal]
